FAERS Safety Report 12612369 (Version 1)
Quarter: 2016Q3

REPORT INFORMATION
  Report Type: Spontaneous
  Country: US (occurrence: US)
  Receive Date: 20160801
  Receipt Date: 20160801
  Transmission Date: 20161109
  Serious: Yes (Other)
  Sender: FDA-Public Use
  Company Number: US-TEVA-679287USA

PATIENT
  Age: 51 Year
  Sex: Male

DRUGS (1)
  1. COPAXONE [Suspect]
     Active Substance: GLATIRAMER ACETATE
     Dosage: UNKNOWN DOSAGE
     Dates: start: 201011

REACTIONS (3)
  - White blood cell count increased [Unknown]
  - Lymphocyte count increased [Unknown]
  - Leukaemia [Unknown]

NARRATIVE: CASE EVENT DATE: 2014
